FAERS Safety Report 12287011 (Version 1)
Quarter: 2016Q2

REPORT INFORMATION
  Report Type: Spontaneous
  Country: IN (occurrence: IN)
  Receive Date: 20160420
  Receipt Date: 20160420
  Transmission Date: 20160815
  Serious: Yes (Hospitalization, Other)
  Sender: FDA-Public Use
  Company Number: IN-WATSON-2016-08009

PATIENT
  Age: 57 Year
  Sex: Male

DRUGS (1)
  1. TACROLIMUS (UNKNOWN) [Suspect]
     Active Substance: TACROLIMUS
     Indication: PRODUCT USED FOR UNKNOWN INDICATION
     Dosage: UNK
     Route: 065

REACTIONS (4)
  - Neurotoxicity [Recovered/Resolved]
  - Cerebral infarction [Recovered/Resolved]
  - Cerebral ischaemia [Recovered/Resolved]
  - Coma [Recovered/Resolved]
